FAERS Safety Report 8553531-7 (Version None)
Quarter: 2012Q3

REPORT INFORMATION
  Report Type: 
  Country: None (occurrence: None)
  Receive Date: 20120731
  Receipt Date: 20120613
  Transmission Date: 20120928
  Serious: Yes (Hospitalization)
  Sender: FDA-Public Use
  Company Number: DE-ASTRAZENECA-2012SE39926

PATIENT
  Age: 54 Year
  Sex: Female

DRUGS (14)
  1. VALDOXAN [Concomitant]
     Route: 048
     Dates: start: 20110401
  2. CYMBALTA [Suspect]
     Route: 048
     Dates: start: 20110818, end: 20110831
  3. LYRICA [Suspect]
     Route: 048
     Dates: start: 20111027, end: 20111107
  4. ASPIRIN [Suspect]
     Route: 048
     Dates: start: 20111212
  5. CYMBALTA [Suspect]
     Dosage: 30-60 MG
     Route: 048
     Dates: start: 20110810, end: 20110817
  6. CYMBALTA [Suspect]
     Route: 048
     Dates: start: 20110901, end: 20111107
  7. ASPIRIN [Suspect]
     Dosage: 120-160 MG
     Route: 048
     Dates: start: 20110421, end: 20111104
  8. ZOLPIDEM [Concomitant]
     Route: 048
     Dates: start: 20110427, end: 20111107
  9. SEROQUEL [Suspect]
     Dosage: 500-800 MG
     Route: 048
     Dates: start: 20110301, end: 20110703
  10. SEROQUEL [Suspect]
     Route: 048
     Dates: start: 20110704, end: 20111107
  11. PANTOPRAZOLE [Concomitant]
     Route: 048
     Dates: start: 20110126
  12. VALDOXAN [Concomitant]
     Route: 048
     Dates: start: 20110126, end: 20110208
  13. CLIOVELLE [Concomitant]
     Route: 048
     Dates: start: 20110126, end: 20111107
  14. VALDOXAN [Concomitant]
     Route: 048
     Dates: start: 20110209, end: 20110331

REACTIONS (3)
  - DERMATOMYOSITIS [None]
  - COMPARTMENT SYNDROME [None]
  - MYOPATHY TOXIC [None]
